FAERS Safety Report 16244568 (Version 4)
Quarter: 2020Q3

REPORT INFORMATION
  Report Type: Report from Study
  Country: KR (occurrence: KR)
  Receive Date: 20190426
  Receipt Date: 20200416
  Transmission Date: 20201105
  Serious: Yes (Hospitalization, Other)
  Sender: FDA-Public Use
  Company Number: KR-ROCHE-2308548

PATIENT
  Age: 51 Year
  Sex: Female

DRUGS (11)
  1. DUPHALAC [Concomitant]
     Active Substance: LACTULOSE
     Route: 048
     Dates: start: 20190821, end: 20190918
  2. MAGMIL S [Concomitant]
     Route: 048
     Dates: start: 20190415, end: 20190425
  3. ALECTINIB. [Suspect]
     Active Substance: ALECTINIB
     Route: 048
     Dates: start: 20190411
  4. STILLEN 2X [Concomitant]
     Indication: PROPHYLAXIS
     Route: 048
     Dates: start: 20190405, end: 20190418
  5. TRASPEN [Concomitant]
     Indication: PROPHYLAXIS
     Route: 048
     Dates: start: 20190405, end: 20190418
  6. DUPHALAC [Concomitant]
     Active Substance: LACTULOSE
     Indication: CONSTIPATION
     Route: 048
     Dates: start: 20190405, end: 20190418
  7. LAYLA [Concomitant]
     Route: 048
     Dates: start: 20190405, end: 20190418
  8. ALECTINIB. [Suspect]
     Active Substance: ALECTINIB
     Indication: NON-SMALL CELL LUNG CANCER METASTATIC
     Route: 048
     Dates: start: 20190314, end: 20190404
  9. XARELTO [Concomitant]
     Active Substance: RIVAROXABAN
     Route: 048
     Dates: start: 20190530
  10. DEXILANT [Concomitant]
     Active Substance: DEXLANSOPRAZOLE
     Indication: PROPHYLAXIS
     Route: 048
     Dates: start: 20190405, end: 20190418
  11. DUPHALAC [Concomitant]
     Active Substance: LACTULOSE
     Route: 048
     Dates: start: 20190509, end: 20190627

REACTIONS (8)
  - Constipation [Recovering/Resolving]
  - Pulmonary embolism [Recovered/Resolved]
  - Alanine aminotransferase increased [Recovered/Resolved]
  - Oedema peripheral [Not Recovered/Not Resolved]
  - Femoral neck fracture [Recovered/Resolved]
  - Nasopharyngitis [Recovered/Resolved]
  - Aspartate aminotransferase increased [Not Recovered/Not Resolved]
  - Pneumonitis [Recovered/Resolved]

NARRATIVE: CASE EVENT DATE: 20190319
